FAERS Safety Report 9401022 (Version 1)
Quarter: 2013Q3

REPORT INFORMATION
  Report Type: Report from Study
  Country: IL (occurrence: IL)
  Receive Date: 20130715
  Receipt Date: 20130715
  Transmission Date: 20140515
  Serious: Yes (Other)
  Sender: FDA-Public Use
  Company Number: IL-GLAXOSMITHKLINE-B0906925A

PATIENT
  Age: 32 Year
  Sex: Female

DRUGS (1)
  1. RETIGABINE [Suspect]
     Indication: PARTIAL SEIZURES
     Dosage: 350MG THREE TIMES PER DAY
     Route: 048
     Dates: start: 20071008

REACTIONS (1)
  - Retinal pigmentation [Unknown]
